FAERS Safety Report 24730073 (Version 1)
Quarter: 2024Q4

REPORT INFORMATION
  Report Type: Spontaneous
  Country: JP (occurrence: JP)
  Receive Date: 20241213
  Receipt Date: 20241213
  Transmission Date: 20250115
  Serious: Yes (Hospitalization)
  Sender: GLAXOSMITHKLINE
  Company Number: JP-GSK-JP2024JPN144858

PATIENT

DRUGS (1)
  1. DAPRODUSTAT [Suspect]
     Active Substance: DAPRODUSTAT
     Indication: Nephrogenic anaemia
     Dosage: UNK
     Route: 048

REACTIONS (2)
  - Dysphagia [Recovered/Resolved]
  - Gastrostomy [Recovering/Resolving]

NARRATIVE: CASE EVENT DATE: 20240101
